FAERS Safety Report 24951977 (Version 1)
Quarter: 2025Q1

REPORT INFORMATION
  Report Type: Spontaneous
  Country: US (occurrence: None)
  Receive Date: 20250207
  Receipt Date: 20250207
  Transmission Date: 20250409
  Serious: Yes (Other)
  Sender: FDA-CTU
  Company Number: None

PATIENT
  Age: 54 Year
  Sex: Female
  Weight: 85.5 kg

DRUGS (1)
  1. MEKINIST [Suspect]
     Active Substance: TRAMETINIB DIMETHYL SULFOXIDE
     Indication: Ovarian cancer
     Dosage: FREQUENCY : TWICE A DAY;?
     Route: 048
     Dates: start: 20250124, end: 20250131

REACTIONS (8)
  - Tremor [None]
  - Gait disturbance [None]
  - Grip strength decreased [None]
  - Confusional state [None]
  - Agitation [None]
  - Anger [None]
  - Emotional disorder [None]
  - Depressed mood [None]

NARRATIVE: CASE EVENT DATE: 20250124
